FAERS Safety Report 17035049 (Version 1)
Quarter: 2019Q4

REPORT INFORMATION
  Report Type: Spontaneous
  Country: US (occurrence: US)
  Receive Date: 20191115
  Receipt Date: 20191115
  Transmission Date: 20200122
  Serious: Yes (Other)
  Sender: FDA-Public Use
  Company Number: US-TORRENT-00009474

PATIENT
  Sex: Male

DRUGS (2)
  1. LAMOTRIGINE. [Suspect]
     Active Substance: LAMOTRIGINE
     Indication: PRODUCT USED FOR UNKNOWN INDICATION
     Dosage: 1 IN MORNING AND 2 IN EVENING
  2. LAMICTAL [Suspect]
     Active Substance: LAMOTRIGINE
     Indication: PRODUCT USED FOR UNKNOWN INDICATION
     Dosage: 90 TABLETS PER MONTH, WAS GETTING 450 MG/DAY INSTEAD OF 300 MG/DAY

REACTIONS (10)
  - Paranoia [Unknown]
  - Night sweats [Unknown]
  - Seizure [Unknown]
  - Blister [Unknown]
  - Hallucination [Unknown]
  - Palpitations [Unknown]
  - Myocardial infarction [Unknown]
  - Erythema [Unknown]
  - Dyspnoea [Unknown]
  - Product dispensing error [Unknown]
